FAERS Safety Report 9784962 (Version 1)
Quarter: 2013Q4

REPORT INFORMATION
  Report Type: Spontaneous
  Country: FR (occurrence: FR)
  Receive Date: 20131227
  Receipt Date: 20131227
  Transmission Date: 20140711
  Serious: Yes (Hospitalization)
  Sender: FDA-Public Use
  Company Number: FR-BRISTOL-MYERS SQUIBB COMPANY-19932847

PATIENT
  Age: 32 Year
  Sex: Female

DRUGS (2)
  1. ABILIFY TABS 5 MG [Suspect]
     Dosage: 5 MG THEN 10 MG THEN 15 MG PER DAY, THEN 5 MG PER DAY EVERY OTHER DAY
  2. LARGACTIL [Suspect]
     Dosage: TABS?1 TABLET PER DAY EVERY OTHER DAY
     Dates: start: 20130926

REACTIONS (1)
  - Psychiatric decompensation [Recovered/Resolved]
